FAERS Safety Report 8482368-2 (Version None)
Quarter: 2012Q3

REPORT INFORMATION
  Report Type: 
  Country: None (occurrence: None)
  Receive Date: 20120702
  Receipt Date: 20120621
  Transmission Date: 20120928
  Serious: Yes (Other)
  Sender: FDA-Public Use
  Company Number: US-JNJFOC-20120611339

PATIENT
  Sex: Female
  Weight: 53.52 kg

DRUGS (8)
  1. DILTIAZEM HYDROCHOLORIDE [Concomitant]
     Indication: CARDIAC OPERATION
     Dates: start: 20010101
  2. METOPROLOL [Concomitant]
     Indication: HYPERTENSION
  3. XARELTO [Suspect]
     Indication: CEREBROVASCULAR ACCIDENT PROPHYLAXIS
     Route: 048
     Dates: start: 20120524, end: 20120602
  4. KLOR-CON [Concomitant]
     Indication: ELECTROLYTE SUBSTITUTION THERAPY
     Dates: start: 20080101
  5. LASIX [Concomitant]
     Indication: FLUID RETENTION
     Dates: start: 20080101
  6. LORAZEPAM [Concomitant]
     Indication: ATRIAL FIBRILLATION
     Dates: start: 20010101
  7. DIGOXIN [Concomitant]
     Indication: CARDIAC DISORDER
     Dates: start: 20010101
  8. XARELTO [Suspect]
     Indication: ATRIAL FIBRILLATION
     Route: 048
     Dates: start: 20120524, end: 20120602

REACTIONS (8)
  - BALANCE DISORDER [None]
  - SKELETAL INJURY [None]
  - PAIN [None]
  - DEHYDRATION [None]
  - RENAL INJURY [None]
  - HEAD INJURY [None]
  - HALLUCINATION [None]
  - DECREASED APPETITE [None]
